FAERS Safety Report 14812526 (Version 2)
Quarter: 2018Q2

REPORT INFORMATION
  Report Type: Spontaneous
  Country: JP (occurrence: JP)
  Receive Date: 20180425
  Receipt Date: 20180612
  Transmission Date: 20180711
  Serious: Yes (Hospitalization)
  Sender: FDA-Public Use
  Company Number: JP-TAKEDA-2018TJP010672

PATIENT
  Age: 71 Year
  Sex: Female
  Weight: 49.5 kg

DRUGS (8)
  1. WARFARIN                           /00014803/ [Suspect]
     Active Substance: WARFARIN
     Dosage: 2 MG, UNK
     Route: 048
     Dates: end: 20180212
  2. METGLUCO [Concomitant]
     Active Substance: METFORMIN HYDROCHLORIDE
     Dosage: UNK
     Route: 048
  3. TAKELDA COMBINATION TABLETS [Suspect]
     Active Substance: ASPIRIN\LANSOPRAZOLE
     Indication: THROMBOSIS PROPHYLAXIS
     Dosage: 1 DF, QD
     Route: 048
     Dates: start: 20180113, end: 20180212
  4. CRESTOR [Concomitant]
     Active Substance: ROSUVASTATIN CALCIUM
     Dosage: UNK
     Route: 048
  5. WARFARIN                           /00014803/ [Suspect]
     Active Substance: WARFARIN
     Indication: CARDIAC ANEURYSM
     Dosage: 3 MG, UNK
     Route: 048
     Dates: start: 20180119
  6. WARFARIN                           /00014803/ [Suspect]
     Active Substance: WARFARIN
     Dosage: 2.75 MG, UNK
     Route: 048
  7. CLOPIDOGREL [Suspect]
     Active Substance: CLOPIDOGREL BISULFATE
     Indication: THROMBOSIS PROPHYLAXIS
     Dosage: 75 MG, QD
     Route: 048
     Dates: start: 20180113
  8. BISONO [Concomitant]
     Active Substance: BISOPROLOL
     Dosage: UNK
     Route: 062

REACTIONS (6)
  - Pyrexia [Unknown]
  - Gastrointestinal erosion [Recovering/Resolving]
  - Malaise [Recovered/Resolved]
  - Haemoglobin decreased [Recovered/Resolved]
  - Faeces discoloured [Recovered/Resolved]
  - Rhinorrhoea [Unknown]

NARRATIVE: CASE EVENT DATE: 201802
